FAERS Safety Report 5963749-5 (Version None)
Quarter: 2008Q4

REPORT INFORMATION
  Report Type: 
  Country: None (occurrence: None)
  Receive Date: 20081121
  Receipt Date: 20081121
  Transmission Date: 20090506
  Serious: Yes (Life-Threatening)
  Sender: FDA-Public Use
  Company Number: None

PATIENT
  Sex: Male
  Weight: 95.2554 kg

DRUGS (1)
  1. ADDERALL XR 30 [Suspect]
     Indication: ATTENTION DEFICIT/HYPERACTIVITY DISORDER
     Dosage: 1 CAPSULE TWICE PER DAY PO
     Route: 048
     Dates: start: 20081101, end: 20081107

REACTIONS (8)
  - DYSGEUSIA [None]
  - GLOSSITIS [None]
  - GLOSSODYNIA [None]
  - ILL-DEFINED DISORDER [None]
  - LIP PAIN [None]
  - OBSTRUCTIVE AIRWAYS DISORDER [None]
  - ORAL DISCOMFORT [None]
  - SWOLLEN TONGUE [None]
